FAERS Safety Report 18881083 (Version 1)
Quarter: 2021Q1

REPORT INFORMATION
  Report Type: Spontaneous
  Country: ES (occurrence: ES)
  Receive Date: 20210211
  Receipt Date: 20210211
  Transmission Date: 20210420
  Serious: Yes (Hospitalization, Other)
  Sender: FDA-Public Use
  Company Number: ES-AMGEN-ESPSP2021020575

PATIENT
  Age: 20 Year
  Sex: Male

DRUGS (3)
  1. ROMIPLOSTIM [Suspect]
     Active Substance: ROMIPLOSTIM
     Indication: IMMUNE THROMBOCYTOPENIA
     Dosage: UNK
     Route: 065
  2. ELTROMBOPAG [Concomitant]
     Active Substance: ELTROMBOPAG
     Indication: IMMUNE THROMBOCYTOPENIA
  3. IMMUNOGLOBULIN I.V [Concomitant]
     Active Substance: HUMAN IMMUNOGLOBULIN G
     Indication: IMMUNE THROMBOCYTOPENIA
     Dosage: UNK

REACTIONS (7)
  - Thunderclap headache [Unknown]
  - Craniocerebral injury [Unknown]
  - Therapeutic product effect incomplete [Unknown]
  - Cerebral venous sinus thrombosis [Unknown]
  - Subdural haematoma [Unknown]
  - Platelet count decreased [Unknown]
  - Syncope [Unknown]
